FAERS Safety Report 7721455-0 (Version None)
Quarter: 2011Q3

REPORT INFORMATION
  Report Type: 
  Country: None (occurrence: None)
  Receive Date: 20110831
  Receipt Date: 20110823
  Transmission Date: 20111222
  Serious: Yes (Hospitalization)
  Sender: FDA-Public Use
  Company Number: AU-B.I. PHARMACEUTICALS,INC./RIDGEFIELD-2011-AU-00750AU

PATIENT
  Sex: Male

DRUGS (5)
  1. PRADAXA [Suspect]
  2. ACCUPRIL [Concomitant]
     Dosage: 5 MG
  3. LIPITOR [Concomitant]
     Dosage: 80 MG
  4. METOPROLOL TARTRATE [Concomitant]
     Dosage: 100 MG
     Dates: start: 20060101
  5. FUROSEMIDE [Concomitant]
     Dosage: 40 MG
     Dates: start: 20110701

REACTIONS (3)
  - MITRAL VALVE INCOMPETENCE [None]
  - CHORDAE TENDINAE RUPTURE [None]
  - OEDEMA PERIPHERAL [None]
